FAERS Safety Report 11583255 (Version 3)
Quarter: 2015Q4

REPORT INFORMATION
  Report Type: Spontaneous
  Country: US (occurrence: US)
  Receive Date: 20151001
  Receipt Date: 20151014
  Transmission Date: 20160304
  Serious: Yes (Other)
  Sender: FDA-Public Use
  Company Number: US-RECKITT BENCKISER HEALTHCARE INT LIMITED-RB-07794-2015

PATIENT
  Age: 4 Year
  Sex: Male

DRUGS (3)
  1. DELSYM [Suspect]
     Active Substance: DEXTROMETHORPHAN
     Indication: COUGH
     Dosage: 2.5 ML, BID
     Route: 065
     Dates: start: 20150911, end: 20150913
  2. ZITHROMAX [Suspect]
     Active Substance: AZITHROMYCIN DIHYDRATE
     Indication: PRODUCT USED FOR UNKNOWN INDICATION
     Dosage: 2 ML, UNK
     Route: 065
     Dates: start: 20150911, end: 20150913
  3. DELSYM [Suspect]
     Active Substance: DEXTROMETHORPHAN
     Dosage: 16.7 ML, SINGLE
     Route: 065
     Dates: start: 20150914, end: 20150914

REACTIONS (4)
  - Abnormal behaviour [Unknown]
  - Unresponsive to stimuli [Unknown]
  - Psychomotor hyperactivity [Not Recovered/Not Resolved]
  - Disturbance in attention [Unknown]

NARRATIVE: CASE EVENT DATE: 20150913
